FAERS Safety Report 9722406 (Version 1)
Quarter: 2013Q4

REPORT INFORMATION
  Report Type: Report from Study
  Country: HU (occurrence: HU)
  Receive Date: 20131202
  Receipt Date: 20131202
  Transmission Date: 20140711
  Serious: Yes (Other)
  Sender: FDA-Public Use
  Company Number: PHHY2013HU138860

PATIENT
  Age: 53 Year
  Sex: 0

DRUGS (1)
  1. ONBREZ [Suspect]
     Dosage: UNK

REACTIONS (5)
  - Erysipelas [Unknown]
  - Abdominal pain upper [Unknown]
  - Back pain [Unknown]
  - Cough [Unknown]
  - Chest pain [Unknown]
